FAERS Safety Report 19093167 (Version 1)
Quarter: 2021Q2

REPORT INFORMATION
  Report Type: Report from Study
  Country: US (occurrence: US)
  Receive Date: 20210405
  Receipt Date: 20210405
  Transmission Date: 20210717
  Serious: Yes (Other)
  Sender: FDA-Public Use
  Company Number: US-OTSUKA-2021_010784

PATIENT
  Sex: Male

DRUGS (1)
  1. TOLVAPTAN [Suspect]
     Active Substance: TOLVAPTAN
     Indication: CONGENITAL CYSTIC KIDNEY DISEASE
     Dosage: UNK
     Route: 065
     Dates: start: 20210311

REACTIONS (6)
  - Dry mouth [Not Recovered/Not Resolved]
  - Pollakiuria [Recovering/Resolving]
  - Dizziness [Unknown]
  - Limb discomfort [Unknown]
  - Back pain [Unknown]
  - Blood pressure systolic decreased [Unknown]
